FAERS Safety Report 9992808 (Version 1)
Quarter: 2014Q1

REPORT INFORMATION
  Report Type: Spontaneous
  Country: CA (occurrence: CA)
  Receive Date: 20140310
  Receipt Date: 20140310
  Transmission Date: 20141002
  Serious: Yes (Other)
  Sender: FDA-Public Use
  Company Number: CA-PFIZER INC-2014065021

PATIENT
  Sex: Male

DRUGS (4)
  1. MORPHINE SULFATE [Suspect]
     Dosage: UNK
     Route: 042
  2. FENTANYL [Suspect]
     Dosage: UNK
  3. DILAUDID [Suspect]
     Dosage: UNK
  4. VERSED [Suspect]
     Dosage: UNK
     Route: 042

REACTIONS (3)
  - Drug abuse [Unknown]
  - Loss of consciousness [Unknown]
  - Judgement impaired [Unknown]
